FAERS Safety Report 11809691 (Version 1)
Quarter: 2015Q4

REPORT INFORMATION
  Report Type: Report from Study
  Country: US (occurrence: US)
  Receive Date: 20151208
  Receipt Date: 20151208
  Transmission Date: 20160305
  Serious: Yes (Other)
  Sender: FDA-Public Use
  Company Number: US-ROCHE-1406499

PATIENT
  Age: 53 Year
  Sex: Male

DRUGS (28)
  1. LUCENTIS [Suspect]
     Active Substance: RANIBIZUMAB
     Indication: DIABETIC RETINAL OEDEMA
     Route: 050
  2. PHENYLEPHRINE [Concomitant]
     Active Substance: PHENYLEPHRINE\PHENYLEPHRINE HYDROCHLORIDE
     Route: 065
     Dates: start: 20121029
  3. JANUVIA [Concomitant]
     Active Substance: SITAGLIPTIN PHOSPHATE
     Dosage: START 29-FEB-2011
     Route: 048
  4. TYLENOL [Concomitant]
     Active Substance: ACETAMINOPHEN
     Dosage: PRN
     Route: 065
  5. EPINEPHRINE. [Concomitant]
     Active Substance: EPINEPHRINE
     Dosage: GIVEN WITH LIDOCAINE
     Route: 065
  6. BETADINE [Concomitant]
     Active Substance: POVIDONE-IODINE
  7. JANUVIA [Concomitant]
     Active Substance: SITAGLIPTIN PHOSPHATE
     Dosage: OID (UNCLEARLY WRITTEN)
     Route: 048
     Dates: start: 20100517
  8. ASPIRIN. [Concomitant]
     Active Substance: ASPIRIN
     Route: 065
  9. LUCENTIS [Suspect]
     Active Substance: RANIBIZUMAB
     Route: 050
     Dates: start: 20110902
  10. SIMVASTATIN. [Concomitant]
     Active Substance: SIMVASTATIN
     Route: 024
     Dates: start: 20110126
  11. LUCENTIS [Suspect]
     Active Substance: RANIBIZUMAB
     Indication: DIABETIC RETINOPATHY
     Route: 050
     Dates: start: 20110711
  12. AVASTIN [Suspect]
     Active Substance: BEVACIZUMAB
     Indication: DIABETIC RETINOPATHY
     Route: 050
     Dates: start: 20100219
  13. PROPARACAINE [Concomitant]
     Active Substance: PROPARACAINE
     Route: 061
  14. LIDOCAINE. [Concomitant]
     Active Substance: LIDOCAINE
     Dosage: W/EPI
     Route: 065
  15. TROPICAMIDE. [Concomitant]
     Active Substance: TROPICAMIDE
     Route: 065
  16. HUMALOG [Concomitant]
     Active Substance: INSULIN LISPRO
     Dosage: 9 UNITS WITH LUNCH AND SUPPER
     Route: 058
     Dates: start: 20100226
  17. HUMALOG [Concomitant]
     Active Substance: INSULIN LISPRO
     Dosage: 10 UNITS WITH LUNCH AND SUPPER
     Route: 065
  18. CAPTOPRIL. [Concomitant]
     Active Substance: CAPTOPRIL
     Dosage: 2 AM, 1 PM
     Route: 065
     Dates: start: 20110603
  19. TEGRETOL [Concomitant]
     Active Substance: CARBAMAZEPINE
     Route: 065
  20. VICODIN [Concomitant]
     Active Substance: ACETAMINOPHEN\HYDROCODONE BITARTRATE
  21. METFORMIN [Concomitant]
     Active Substance: METFORMIN HYDROCHLORIDE
     Route: 048
     Dates: start: 20110204
  22. LANTUS SOLOSTAR [Concomitant]
     Active Substance: INSULIN GLARGINE
     Dosage: 30 UNITS QHS
     Route: 058
     Dates: start: 20100226
  23. LANTUS SOLOSTAR [Concomitant]
     Active Substance: INSULIN GLARGINE
     Dosage: 32 UNITSAT H.S
     Route: 065
  24. HUMALOG [Concomitant]
     Active Substance: INSULIN LISPRO
     Dosage: 15 UNITS BID
     Route: 058
     Dates: start: 20110428
  25. AVASTIN [Suspect]
     Active Substance: BEVACIZUMAB
     Indication: DIABETIC RETINAL OEDEMA
  26. PHENYLEPHRINE [Concomitant]
     Active Substance: PHENYLEPHRINE\PHENYLEPHRINE HYDROCHLORIDE
     Route: 065
  27. HUMALOG [Concomitant]
     Active Substance: INSULIN LISPRO
     Dosage: 20 UNITS WITH MEALS BID
     Route: 065
  28. CAPTOPRIL. [Concomitant]
     Active Substance: CAPTOPRIL
     Dosage: 2 TABS AQM AND 1 TAB QHS
     Route: 065
     Dates: start: 20100831

REACTIONS (24)
  - Retinal scar [Unknown]
  - Pupillary reflex impaired [Unknown]
  - Trigeminal neuralgia [Recovered/Resolved]
  - Blood glucose increased [Unknown]
  - Blister [Unknown]
  - Cerebral microangiopathy [Unknown]
  - Off label use [Unknown]
  - Conjunctival haemorrhage [Unknown]
  - Retinal disorder [Unknown]
  - Blood blister [Unknown]
  - Foot fracture [Unknown]
  - Macular opacity [Unknown]
  - Lacrimation increased [Unknown]
  - Eye pain [Unknown]
  - Vitreous floaters [Recovered/Resolved]
  - Visual acuity reduced [Unknown]
  - Hordeolum [Unknown]
  - Hyalosis asteroid [Unknown]
  - Hyperkeratosis [Unknown]
  - Headache [Unknown]
  - Retinal cyst [Unknown]
  - Angiogram retina abnormal [Unknown]
  - Dizziness [Unknown]
  - Peripheral swelling [Unknown]

NARRATIVE: CASE EVENT DATE: 201005
